FAERS Safety Report 9252265 (Version 1)
Quarter: 2013Q2

REPORT INFORMATION
  Report Type: Spontaneous
  Country: DK (occurrence: DK)
  Receive Date: 20130424
  Receipt Date: 20130424
  Transmission Date: 20140414
  Serious: Yes (Hospitalization)
  Sender: FDA-Public Use
  Company Number: PHHY2013DK038130

PATIENT
  Age: 41 Year
  Sex: Female

DRUGS (13)
  1. CITALOPRAM SANDOZ [Suspect]
     Indication: DEPRESSION
     Route: 048
     Dates: start: 200908
  2. CITALOPRAM COPYFARM [Suspect]
     Indication: DEPRESSION
     Route: 048
     Dates: start: 200908
  3. CITALOPRAM TEVA [Suspect]
     Indication: DEPRESSION
     Route: 048
     Dates: start: 200908
  4. CITALOPRAM ARROW [Suspect]
     Indication: DEPRESSION
     Route: 048
  5. CITALOPRAM PCD [Suspect]
     Indication: DEPRESSION
     Route: 048
  6. AKARIN [Suspect]
     Indication: DEPRESSION
     Route: 048
     Dates: start: 200908
  7. AZITHROMYCIN SANDOZ [Concomitant]
  8. AVAMYS [Concomitant]
  9. SURLID [Concomitant]
  10. PREDNISOLON DAK [Concomitant]
  11. FLUCONAZOL [Concomitant]
  12. NASOMET [Concomitant]
  13. ELOCON [Concomitant]

REACTIONS (18)
  - Dental caries [Unknown]
  - Pulpitis dental [Not Recovered/Not Resolved]
  - Tooth disorder [Not Recovered/Not Resolved]
  - Swelling [Not Recovered/Not Resolved]
  - Pain [Not Recovered/Not Resolved]
  - Dental necrosis [Not Recovered/Not Resolved]
  - Tooth fracture [Not Recovered/Not Resolved]
  - Trismus [Not Recovered/Not Resolved]
  - Alveolitis [Not Recovered/Not Resolved]
  - Tension headache [Not Recovered/Not Resolved]
  - Tonsillar disorder [Not Recovered/Not Resolved]
  - Palatal oedema [Not Recovered/Not Resolved]
  - Pharyngeal erythema [Not Recovered/Not Resolved]
  - Paraesthesia [Not Recovered/Not Resolved]
  - Headache [Not Recovered/Not Resolved]
  - Nausea [Not Recovered/Not Resolved]
  - Dry mouth [Not Recovered/Not Resolved]
  - Tongue coated [Unknown]
